FAERS Safety Report 10080909 (Version 1)
Quarter: 2014Q2

REPORT INFORMATION
  Report Type: Spontaneous
  Country: US (occurrence: US)
  Receive Date: 20140416
  Receipt Date: 20140416
  Transmission Date: 20141212
  Serious: Yes (Other)
  Sender: FDA-Public Use
  Company Number: US-FRI-1000066356

PATIENT
  Age: 56 Year
  Sex: Female

DRUGS (4)
  1. ARMOUR THYROID [Suspect]
     Indication: HYPOTHYROIDISM
     Dosage: 30 MG
     Route: 048
  2. ARMOUR THYROID [Suspect]
     Dosage: 60 MG
     Route: 048
     Dates: end: 201311
  3. ARMOUR THYROID [Suspect]
     Dosage: 90 MG
     Route: 048
     Dates: start: 201311, end: 201403
  4. ARMOUR THYROID [Suspect]
     Dosage: 120 MG
     Route: 048
     Dates: start: 201403

REACTIONS (2)
  - Papillary thyroid cancer [Recovered/Resolved]
  - Blood thyroid stimulating hormone increased [Not Recovered/Not Resolved]
